FAERS Safety Report 9414019 (Version 3)
Quarter: 2013Q3

REPORT INFORMATION
  Report Type: Spontaneous
  Country: US (occurrence: US)
  Receive Date: 20130723
  Receipt Date: 20130906
  Transmission Date: 20140515
  Serious: No
  Sender: FDA-Public Use
  Company Number: US-009507513-1307USA008572

PATIENT
  Age: 54 Year
  Sex: Female

DRUGS (8)
  1. REBETOL [Suspect]
     Indication: HEPATITIS C
     Dosage: UNK
     Route: 048
     Dates: start: 19970704, end: 19980102
  2. REBETOL [Suspect]
     Dosage: UNK
     Route: 048
     Dates: start: 19990702, end: 20000602
  3. REBETOL [Suspect]
     Dosage: UNK
     Route: 048
     Dates: start: 20130702
  4. INTRONA [Suspect]
     Indication: HEPATITIS C
     Dosage: UNK
     Dates: start: 19970704, end: 19980102
  5. INTRONA [Suspect]
     Dosage: UNK
     Dates: start: 19990702, end: 20000602
  6. INTRONA [Suspect]
     Dosage: UNK
     Dates: start: 20130701
  7. VICTRELIS [Suspect]
     Indication: HEPATITIS C
     Dosage: UNK
     Route: 048
     Dates: start: 20130729
  8. PEGASYS [Suspect]
     Indication: HEPATITIS C
     Dosage: UNK
     Dates: start: 20130701

REACTIONS (6)
  - Hepatitis C [Unknown]
  - Drug ineffective [Unknown]
  - Diarrhoea [Unknown]
  - Vomiting [Unknown]
  - Platelet count decreased [Unknown]
  - Fatigue [Unknown]
